FAERS Safety Report 5874617-1 (Version None)
Quarter: 2008Q3

REPORT INFORMATION
  Report Type: 
  Country: None (occurrence: None)
  Receive Date: 20080902
  Receipt Date: 20080822
  Transmission Date: 20090109
  Serious: Yes (Other)
  Sender: FDA-Public Use
  Company Number: GXKR2008DE08026

PATIENT
  Sex: Female

DRUGS (2)
  1. ACETAMINOPHEN [Suspect]
     Dosage: ORAL
     Route: 048
  2. IBUPROFEN TABLETS [Suspect]
     Dosage: ORAL
     Route: 048

REACTIONS (1)
  - CONVULSION [None]
